FAERS Safety Report 4844221-2 (Version None)
Quarter: 2005Q4

REPORT INFORMATION
  Report Type: 
  Country: None (occurrence: None)
  Receive Date: 20051202
  Receipt Date: 20051123
  Transmission Date: 20060501
  Serious: Yes (Hospitalization)
  Sender: FDA-Public Use
  Company Number: GR-ABBOTT-05P-066-0318317-00

PATIENT
  Age: 47 Year
  Sex: Female

DRUGS (2)
  1. SIBUTRAMINE [Suspect]
     Indication: WEIGHT DECREASED
  2. INSULIN [Concomitant]
     Indication: DRUG USE FOR UNKNOWN INDICATION
     Dosage: NOT REPORTED

REACTIONS (1)
  - HEPATITIS CHOLESTATIC [None]
